FAERS Safety Report 14497775 (Version 2)
Quarter: 2018Q1

REPORT INFORMATION
  Report Type: Spontaneous
  Country: US (occurrence: US)
  Receive Date: 20180207
  Receipt Date: 20180213
  Transmission Date: 20180509
  Serious: Yes (Hospitalization, Other)
  Sender: FDA-Public Use
  Company Number: US-ASPEN-GLO2018US000871

PATIENT

DRUGS (10)
  1. CYTARABINE. [Suspect]
     Active Substance: CYTARABINE
     Dosage: 135 MG, QD
     Route: 042
     Dates: start: 20170918, end: 20170921
  2. CYTARABINE. [Suspect]
     Active Substance: CYTARABINE
     Dosage: 135 MG
     Route: 042
     Dates: start: 20170513
  3. TIOGUANINE [Suspect]
     Active Substance: THIOGUANINE ANHYDROUS
     Indication: B PRECURSOR TYPE ACUTE LEUKAEMIA
     Dosage: 100 MG, QD
     Route: 048
     Dates: start: 20170918
  4. CYTARABINE. [Suspect]
     Active Substance: CYTARABINE
     Indication: B PRECURSOR TYPE ACUTE LEUKAEMIA
     Dosage: 135 MG, QD
     Route: 042
     Dates: start: 20170313
  5. METHOTREXATE. [Suspect]
     Active Substance: METHOTREXATE
     Indication: B PRECURSOR TYPE ACUTE LEUKAEMIA
     Dosage: 15 MG, UNK
     Route: 037
     Dates: start: 20170918, end: 20170925
  6. TIOGUANINE [Suspect]
     Active Substance: THIOGUANINE ANHYDROUS
     Dosage: 120 MG, QD
     Route: 048
     Dates: start: 20170918
  7. VORICONAZOLE. [Concomitant]
     Active Substance: VORICONAZOLE
     Indication: PRODUCT USED FOR UNKNOWN INDICATION
     Dosage: UNK
     Route: 065
     Dates: start: 20170925, end: 20170930
  8. CYCLOPHOSPHAMIDE. [Suspect]
     Active Substance: CYCLOPHOSPHAMIDE
     Indication: B PRECURSOR TYPE ACUTE LEUKAEMIA
     Dosage: 1780 MG, SINGLE
     Route: 042
     Dates: start: 20170313
  9. CYCLOPHOSPHAMIDE. [Suspect]
     Active Substance: CYCLOPHOSPHAMIDE
     Dosage: 1780 MG, SINGLE
     Route: 042
     Dates: start: 20170327
  10. CYTARABINE. [Suspect]
     Active Substance: CYTARABINE
     Dosage: 135 MG, QD
     Route: 042
     Dates: start: 20170925, end: 20170928

REACTIONS (2)
  - Cellulitis [Recovered/Resolved]
  - Lung infection [Recovering/Resolving]

NARRATIVE: CASE EVENT DATE: 20170921
